FAERS Safety Report 25248395 (Version 1)
Quarter: 2025Q2

REPORT INFORMATION
  Report Type: Report from Study
  Country: US (occurrence: US)
  Receive Date: 20250429
  Receipt Date: 20250429
  Transmission Date: 20250716
  Serious: Yes (Other)
  Sender: ALEXION PHARMACEUTICALS
  Company Number: US-AstraZeneca-CH-00854146A

PATIENT

DRUGS (3)
  1. OLAPARIB [Suspect]
     Active Substance: OLAPARIB
     Route: 065
  2. ATORVASTATIN [Concomitant]
     Active Substance: ATORVASTATIN
     Route: 065
  3. TYLENOL [Concomitant]
     Active Substance: ACETAMINOPHEN
     Route: 065

REACTIONS (7)
  - Neuropathy peripheral [Unknown]
  - Anaemia [Unknown]
  - Blood cholesterol increased [Unknown]
  - Eye pruritus [Unknown]
  - Pain in extremity [Unknown]
  - Negative thoughts [Unknown]
  - Insomnia [Unknown]
